FAERS Safety Report 19151663 (Version 2)
Quarter: 2021Q3

REPORT INFORMATION
  Report Type: Report from Study
  Country: JP (occurrence: JP)
  Receive Date: 20210419
  Receipt Date: 20210901
  Transmission Date: 20211014
  Serious: Yes (Hospitalization, Other)
  Sender: FDA-Public Use
  Company Number: JP-JNJFOC-A-CH2018-175681

PATIENT
  Age: 59 Year
  Sex: Female

DRUGS (18)
  1. VOLTAREN [Concomitant]
     Active Substance: DICLOFENAC SODIUM
     Indication: PAIN
     Dates: start: 20170722, end: 20180919
  2. FIBLAST [Concomitant]
     Indication: SKIN ULCER
     Route: 003
     Dates: start: 20170727
  3. JUVELA N [Concomitant]
     Active Substance: TOCOPHERYL NICOTINATE, D-.ALPHA.
     Indication: SYSTEMIC SCLERODERMA
     Route: 048
     Dates: start: 20120218, end: 20191016
  4. MAGMITT [Concomitant]
     Active Substance: MAGNESIUM OXIDE
     Indication: CONSTIPATION
     Dates: start: 20170722, end: 20191016
  5. ADALAT [Concomitant]
     Active Substance: NIFEDIPINE
     Indication: ISCHAEMIA
     Route: 048
     Dates: start: 20131119, end: 20181017
  6. LOXONIN [Concomitant]
     Active Substance: LOXOPROFEN SODIUM
     Route: 048
     Dates: start: 20190403, end: 20191016
  7. TRACLEER [Suspect]
     Active Substance: BOSENTAN
     Indication: SCLERODERMA ASSOCIATED DIGITAL ULCER
     Dosage: 62.5 MG, BID
     Route: 048
     Dates: start: 20170719, end: 20191016
  8. PARIET [Concomitant]
     Active Substance: RABEPRAZOLE SODIUM
     Dosage: 20 MG, QD
  9. JZOLOFT [Concomitant]
     Active Substance: SERTRALINE HYDROCHLORIDE
     Indication: DEPRESSION
     Route: 048
     Dates: start: 20180509, end: 20191016
  10. PREDONINE [Suspect]
     Active Substance: PREDNISOLONE
     Indication: SYSTEMIC SCLERODERMA
     Dosage: 5 MG, QD
     Route: 048
     Dates: start: 20090226, end: 20191016
  11. BAYASPIRIN [Suspect]
     Active Substance: ASPIRIN
     Indication: SYSTEMIC SCLERODERMA
     Dosage: 100 MG, QD
     Route: 048
     Dates: start: 20121110, end: 20191016
  12. NAUZELIN [Concomitant]
     Active Substance: DOMPERIDONE
     Indication: NAUSEA
     Route: 048
     Dates: start: 20170720, end: 20191016
  13. BONOTEO [Concomitant]
     Active Substance: MINODRONIC ACID
     Indication: OSTEOPOROSIS
     Route: 048
     Dates: start: 20161122, end: 20191016
  14. PARIET [Concomitant]
     Active Substance: RABEPRAZOLE SODIUM
     Indication: GASTROOESOPHAGEAL REFLUX DISEASE
     Dosage: 10 MG, QD
     Dates: start: 20090226, end: 20191016
  15. HOCHUEKKITO [Concomitant]
     Active Substance: HERBALS
     Indication: FATIGUE
     Route: 048
     Dates: start: 20090711, end: 20191016
  16. PURSENNIDE [Concomitant]
     Indication: CONSTIPATION
     Route: 048
     Dates: start: 20170722, end: 20191016
  17. TRAMCET [Concomitant]
     Active Substance: ACETAMINOPHEN\TRAMADOL
     Indication: PEPTIC ULCER
     Dosage: TRAMADOL 37.5MG ACETAMINOPHEN 325MG
     Route: 048
     Dates: start: 20170720, end: 20191016
  18. LUNESTA [Concomitant]
     Active Substance: ESZOPICLONE
     Indication: INSOMNIA
     Route: 048
     Dates: start: 20180507, end: 20181017

REACTIONS (10)
  - Hepatic function abnormal [Recovering/Resolving]
  - Blood alkaline phosphatase increased [Recovering/Resolving]
  - Duodenal ulcer [Unknown]
  - Aspartate aminotransferase increased [Recovering/Resolving]
  - Pneumonia [Not Recovered/Not Resolved]
  - Iron deficiency anaemia [Recovering/Resolving]
  - Occult blood positive [Recovering/Resolving]
  - Alanine aminotransferase increased [Recovering/Resolving]
  - Gamma-glutamyltransferase increased [Recovering/Resolving]
  - Vasodilation procedure [Unknown]

NARRATIVE: CASE EVENT DATE: 20170920
